FAERS Safety Report 14674741 (Version 1)
Quarter: 2018Q1

REPORT INFORMATION
  Report Type: Other
  Country: PL (occurrence: PL)
  Receive Date: 20180323
  Receipt Date: 20180323
  Transmission Date: 20180509
  Serious: Yes (Hospitalization, Disabling)
  Sender: FDA-Public Use
  Company Number: PL-CELLTRION INC.-2018PL018483

PATIENT

DRUGS (6)
  1. REMSIMA [Suspect]
     Active Substance: INFLIXIMAB
     Indication: ARTHROPATHY
     Dosage: 3 MG/KG
     Route: 042
     Dates: start: 20140207, end: 20140207
  2. REMSIMA [Suspect]
     Active Substance: INFLIXIMAB
     Indication: PSORIASIS
     Dosage: UNK
     Route: 042
     Dates: start: 20170515, end: 20170515
  3. METHOTREXATE (METHOTREXATE SODIUM) [Concomitant]
     Active Substance: METHOTREXATE SODIUM
     Indication: ARTHROPATHY
  4. ACIDUM FOLICUM [Concomitant]
     Active Substance: FOLIC ACID
     Indication: ARTHROPATHY
  5. METHOTREXATE (METHOTREXATE SODIUM) [Concomitant]
     Active Substance: METHOTREXATE SODIUM
     Indication: PSORIASIS
     Dosage: 20 MG, 1/WEEK
     Route: 058
     Dates: start: 20100615, end: 20170515
  6. ACIDUM FOLICUM [Concomitant]
     Active Substance: FOLIC ACID
     Indication: PSORIASIS
     Dosage: 15 MG, 1/WEEK
     Route: 048
     Dates: start: 20100615, end: 20170515

REACTIONS (3)
  - Cerebrovascular accident [Recovered/Resolved with Sequelae]
  - Aphasia [Recovered/Resolved with Sequelae]
  - Underdose [Unknown]

NARRATIVE: CASE EVENT DATE: 20170523
